FAERS Safety Report 4315754-2 (Version None)
Quarter: 2004Q1

REPORT INFORMATION
  Report Type: 
  Country: None (occurrence: None)
  Receive Date: 20040311
  Receipt Date: 20040213
  Transmission Date: 20041129
  Serious: Yes (Hospitalization)
  Sender: FDA-Public Use
  Company Number: US-BRISTOL-MYERS SQUIBB COMPANY-12508032

PATIENT
  Age: 42 Year
  Sex: Male

DRUGS (2)
  1. CETUXIMAB [Suspect]
     Indication: COLORECTAL CANCER
     Dosage: THERAPY INITIATED 04 FEB 2004. 572 MG ADMINISTERED ON 26-FEB-2004.
     Route: 042
     Dates: start: 20040211, end: 20040211
  2. IRINOTECAN [Suspect]
     Indication: COLORECTAL CANCER
     Dosage: SUBSEQUENT DOSE ADMINISTERED ON 26-FEB-2004.
     Route: 042
     Dates: start: 20040204, end: 20040204

REACTIONS (7)
  - BLOOD SODIUM DECREASED [None]
  - DEHYDRATION [None]
  - DIARRHOEA [None]
  - FATIGUE [None]
  - HYPOTENSION [None]
  - NEUTROPENIA [None]
  - WHITE BLOOD CELL COUNT DECREASED [None]
